FAERS Safety Report 19167655 (Version 1)
Quarter: 2021Q2

REPORT INFORMATION
  Report Type: Spontaneous
  Country: US (occurrence: US)
  Receive Date: 20210422
  Receipt Date: 20210422
  Transmission Date: 20210717
  Serious: No
  Sender: FDA-Public Use
  Company Number: US-ASTRAZENECA-2021A324478

PATIENT
  Age: 16262 Day
  Sex: Female

DRUGS (3)
  1. SEROQUEL XR [Suspect]
     Active Substance: QUETIAPINE FUMARATE
     Indication: BIPOLAR DISORDER
     Route: 048
     Dates: start: 202103
  2. SEROQUEL [Suspect]
     Active Substance: QUETIAPINE FUMARATE
     Indication: BIPOLAR DISORDER
     Dosage: SEROQUEL 50MG IN THE MORNING AND 500MG IN THE EVENING
     Route: 048
     Dates: start: 2006, end: 2010
  3. LITHIUM. [Concomitant]
     Active Substance: LITHIUM
     Indication: BIPOLAR DISORDER
     Route: 048
     Dates: start: 2007

REACTIONS (7)
  - Poor peripheral circulation [Unknown]
  - Dizziness [Unknown]
  - Balance disorder [Unknown]
  - Hypoaesthesia [Unknown]
  - Nausea [Unknown]
  - Somnolence [Unknown]
  - Dehydration [Unknown]

NARRATIVE: CASE EVENT DATE: 20210405
